FAERS Safety Report 4968137-6 (Version None)
Quarter: 2006Q2

REPORT INFORMATION
  Report Type: 
  Country: None (occurrence: None)
  Receive Date: 20060410
  Receipt Date: 20060329
  Transmission Date: 20061013
  Serious: Yes (Other)
  Sender: FDA-Public Use
  Company Number: PHHO2006JP05378

PATIENT
  Age: 80 Year
  Sex: Male

DRUGS (7)
  1. LANIRAPID [Concomitant]
     Indication: ATRIAL FIBRILLATION
     Dosage: 0.1 MG, UNK
     Route: 048
     Dates: start: 20030123, end: 20030306
  2. ASPIRIN [Concomitant]
     Indication: PROPHYLAXIS
     Dosage: 100 MG, UNK
     Route: 048
     Dates: start: 20030123, end: 20030320
  3. DICHLOTRIDE [Concomitant]
     Indication: HYPERTENSION
     Route: 048
     Dates: start: 20030207
  4. ASPENON [Concomitant]
     Indication: ATRIAL FIBRILLATION
     Dosage: 40 MG, UNK
     Route: 048
     Dates: start: 20030307, end: 20060127
  5. ADALAT [Concomitant]
     Indication: HYPERTENSION
     Dosage: 40 MG, UNK
     Route: 048
     Dates: start: 20030320, end: 20060206
  6. CARDENALIN [Concomitant]
     Indication: HYPERTENSION
     Dosage: 2 MG, UNK
     Route: 048
     Dates: start: 20040130, end: 20051007
  7. DIOVAN [Suspect]
     Indication: HYPERTENSION
     Dosage: 80 MG, QD
     Route: 048
     Dates: start: 20030127

REACTIONS (1)
  - ATRIAL FIBRILLATION [None]
